FAERS Safety Report 4604805-3 (Version None)
Quarter: 2005Q2

REPORT INFORMATION
  Report Type: 
  Country: None (occurrence: None)
  Receive Date: 20050218
  Receipt Date: 20050117
  Transmission Date: 20051028
  Serious: Yes (Other)
  Sender: FDA-Public Use
  Company Number: HQWYE732520JAN05

PATIENT
  Age: 6 Year
  Sex: Male
  Weight: 34.05 kg

DRUGS (4)
  1. CHILDREN'S ADVIL COLD [Suspect]
     Indication: NASAL CONGESTION
     Dosage: 2 TSP 1X PER 1 DAY, ORAL
     Route: 048
     Dates: start: 20050115, end: 20050115
  2. CHILDREN'S ADVIL COLD [Suspect]
     Indication: PYREXIA
     Dosage: 2 TSP 1X PER 1 DAY, ORAL
     Route: 048
     Dates: start: 20050115, end: 20050115
  3. CHILDREN'S ADVIL COLD [Suspect]
     Indication: SNEEZING
     Dosage: 2 TSP 1X PER 1 DAY, ORAL
     Route: 048
     Dates: start: 20050115, end: 20050115
  4. CLARITIN [Concomitant]

REACTIONS (6)
  - EYE PAIN [None]
  - EYE PRURITUS [None]
  - EYE SWELLING [None]
  - FACIAL PAIN [None]
  - PRURITUS [None]
  - SWELLING FACE [None]
